FAERS Safety Report 12940110 (Version 1)
Quarter: 2016Q4

REPORT INFORMATION
  Report Type: Spontaneous
  Country: DE (occurrence: DE)
  Receive Date: 20161114
  Receipt Date: 20161114
  Transmission Date: 20170207
  Serious: Yes (Disabling)
  Sender: FDA-Public Use
  Company Number: DE-B.I. PHARMACEUTICALS,INC./RIDGEFIELD-2016-BI-067641

PATIENT
  Age: 73 Year
  Sex: Female
  Weight: 70 kg

DRUGS (8)
  1. SPIRIVA [Suspect]
     Active Substance: TIOTROPIUM BROMIDE MONOHYDRATE
     Indication: COUGH
     Route: 065
  2. PROTYRIT [Concomitant]
     Indication: THYROID DISORDER
     Route: 048
  3. DICLOFENAC [Concomitant]
     Active Substance: DICLOFENAC
     Indication: POLYARTHRITIS
     Route: 048
  4. BEPANTHEN [Concomitant]
     Active Substance: DEXPANTHENOL
     Indication: RHINORRHOEA
     Route: 045
  5. CEFURAX [Concomitant]
     Active Substance: CEFUROXIME AXETIL
     Indication: PRODUCTIVE COUGH
     Route: 065
  6. NAC ACUTE [Concomitant]
     Indication: PRODUCTIVE COUGH
     Route: 065
  7. SPIRIVA [Suspect]
     Active Substance: TIOTROPIUM BROMIDE MONOHYDRATE
     Route: 065
     Dates: start: 20160914, end: 20160920
  8. PANTOPRAZOL [Concomitant]
     Active Substance: PANTOPRAZOLE SODIUM
     Indication: POLYARTHRITIS
     Route: 048

REACTIONS (7)
  - Ageusia [Not Recovered/Not Resolved]
  - Sinusitis [Unknown]
  - Anosmia [Not Recovered/Not Resolved]
  - Tachycardia [Unknown]
  - Purulence [Not Recovered/Not Resolved]
  - Dry mouth [Unknown]
  - Overdose [Recovered/Resolved]

NARRATIVE: CASE EVENT DATE: 201609
